FAERS Safety Report 23362354 (Version 1)
Quarter: 2024Q1

REPORT INFORMATION
  Report Type: Report from Study
  Country: US (occurrence: US)
  Receive Date: 20240103
  Receipt Date: 20240103
  Transmission Date: 20240409
  Serious: Yes (Hospitalization)
  Sender: FDA-Public Use
  Company Number: US-TEVA-2023-US-2943404

PATIENT
  Age: 74 Year
  Weight: 70.2 kg

DRUGS (25)
  1. HYDROXYUREA [Suspect]
     Active Substance: HYDROXYUREA
     Indication: Essential thrombocythaemia
     Route: 048
     Dates: start: 20230901, end: 20231009
  2. HYDROXYUREA [Suspect]
     Active Substance: HYDROXYUREA
     Indication: Essential thrombocythaemia
     Dosage: TIME INTERVAL: 0.33333333 WEEKS: ONGOING
     Route: 048
     Dates: start: 20231009
  3. LOPRESSOR [Concomitant]
     Active Substance: METOPROLOL TARTRATE
     Dosage: ONGOING
     Dates: start: 20230905
  4. ELIQUIS [Concomitant]
     Active Substance: APIXABAN
     Dosage: ONGOING
     Dates: start: 20230905
  5. PANTOPRAZOLE [Concomitant]
     Active Substance: PANTOPRAZOLE
     Dosage: ONGOING
     Dates: start: 20230919
  6. TIZANIDINE HYDROCHLORIDE [Concomitant]
     Active Substance: TIZANIDINE HYDROCHLORIDE
     Dosage: ONGOING
     Dates: start: 20230928
  7. BROMFENAC SODIUM [Concomitant]
     Active Substance: BROMFENAC SODIUM
     Dates: start: 202305, end: 202306
  8. HYDROCORTISONE [Concomitant]
     Active Substance: HYDROCORTISONE
     Dosage: ONGOING
     Dates: start: 20150108
  9. ALLOPURINOL [Concomitant]
     Active Substance: ALLOPURINOL
     Dates: start: 202302
  10. PREDNISONE [Concomitant]
     Active Substance: PREDNISONE
     Dates: start: 20230728, end: 20230801
  11. FLONASE [Concomitant]
     Active Substance: FLUTICASONE PROPIONATE
  12. SYNTHROID [Concomitant]
     Active Substance: LEVOTHYROXINE SODIUM
     Dosage: ONGOING
     Dates: start: 20230822
  13. AMLODIPINE [Concomitant]
     Active Substance: AMLODIPINE BESYLATE
     Dates: start: 20180606
  14. ASPIRIN [Concomitant]
     Active Substance: ASPIRIN
     Dosage: ONGOING
     Dates: start: 20140206
  15. CHOLECALCIFEROL [Concomitant]
     Active Substance: CHOLECALCIFEROL
     Dosage: ONGOING
     Dates: start: 20210505
  16. FAMOTIDINE [Concomitant]
     Active Substance: FAMOTIDINE
     Dosage: ONGOING
     Dates: start: 2018
  17. FERROUS SULFATE [Concomitant]
     Active Substance: FERROUS SULFATE
     Dosage: ONGOING
     Dates: start: 2019
  18. LEVEMIR [Concomitant]
     Active Substance: INSULIN DETEMIR
     Dates: start: 20190319
  19. JANUVIA [Concomitant]
     Active Substance: SITAGLIPTIN PHOSPHATE
     Dosage: ONGOING
     Dates: start: 20221128
  20. LOSARTAN [Concomitant]
     Active Substance: LOSARTAN
     Dates: start: 20230315, end: 20230929
  21. METOPROLOL [Concomitant]
     Active Substance: METOPROLOL
     Dosage: ONGOING
     Dates: start: 20220801
  22. PRAVASTATIN [Concomitant]
     Active Substance: PRAVASTATIN
     Dosage: ONGOING
     Dates: start: 2003
  23. VIAGRA [Concomitant]
     Active Substance: SILDENAFIL CITRATE
     Dosage: ONGOING
     Dates: start: 20181205
  24. SODIUM BICARBONATE [Concomitant]
     Active Substance: SODIUM BICARBONATE
     Dosage: ONGOING
     Dates: start: 20230526
  25. TRAMADOL [Concomitant]
     Active Substance: TRAMADOL\TRAMADOL HYDROCHLORIDE
     Dosage: ONGOING
     Dates: start: 20220801

REACTIONS (3)
  - Hypotension [Recovered/Resolved]
  - Dehydration [Recovered/Resolved]
  - Anaemia macrocytic [Recovered/Resolved]

NARRATIVE: CASE EVENT DATE: 20231005
